FAERS Safety Report 6698842-5 (Version None)
Quarter: 2010Q2

REPORT INFORMATION
  Report Type: 
  Country: None (occurrence: None)
  Receive Date: 20100427
  Receipt Date: 20100423
  Transmission Date: 20101027
  Serious: Yes (Life-Threatening, Hospitalization, Disabling, Other)
  Sender: FDA-Public Use
  Company Number: PHHY2010GB10554

PATIENT
  Sex: Male
  Weight: 58 kg

DRUGS (6)
  1. EXJADE [Suspect]
     Indication: THALASSAEMIA BETA
     Dosage: 1125 (UNITS UNSPECIFIED), UNK
     Dates: start: 20080520, end: 20090610
  2. EXJADE [Suspect]
     Indication: IRON OVERLOAD
  3. INSULIN [Concomitant]
     Indication: DIABETES MELLITUS
     Dosage: UNK
     Route: 030
  4. TESTOSTERONE [Concomitant]
     Indication: HYPOGONADISM
     Dosage: 50 MG DAILY
  5. PENICILLIN [Concomitant]
     Indication: PROPHYLAXIS
     Dosage: 250 MG, BID
     Route: 048
  6. BISPHOSPHONATES [Concomitant]
     Indication: OSTEOPOROSIS
     Dosage: 35 MG WEEKLY
     Route: 048
     Dates: start: 20000101

REACTIONS (1)
  - HEPATIC NEOPLASM MALIGNANT [None]
